FAERS Safety Report 7831609-0 (Version None)
Quarter: 2011Q4

REPORT INFORMATION
  Report Type: 
  Country: None (occurrence: None)
  Receive Date: 20111021
  Receipt Date: 20111017
  Transmission Date: 20120403
  Serious: Yes (Other)
  Sender: FDA-Public Use
  Company Number: PHHY2011FR92481

PATIENT
  Age: 84 Year
  Sex: Female

DRUGS (1)
  1. ONBREZ [Suspect]
     Dosage: 150 MCG
     Dates: start: 20110501

REACTIONS (2)
  - OBSTRUCTIVE AIRWAYS DISORDER [None]
  - DYSPNOEA [None]
